FAERS Safety Report 5711499-2 (Version None)
Quarter: 2008Q2

REPORT INFORMATION
  Report Type: 
  Country: None (occurrence: None)
  Receive Date: 20080421
  Receipt Date: 20080411
  Transmission Date: 20081010
  Serious: Yes (Hospitalization, Other)
  Sender: FDA-Public Use
  Company Number: US-MERCK-0706USA00652

PATIENT
  Age: 71 Year
  Sex: Male
  Weight: 61 kg

DRUGS (3)
  1. FOSAMAX [Suspect]
     Indication: OSTEOPOROSIS
     Route: 048
     Dates: start: 19991105
  2. FOSAMAX [Suspect]
     Route: 048
     Dates: start: 20020101, end: 20060601
  3. CELEBREX [Concomitant]
     Indication: ARTHRITIS
     Route: 065
     Dates: start: 19990101, end: 20050101

REACTIONS (22)
  - BENIGN PROSTATIC HYPERPLASIA [None]
  - BRONCHITIS [None]
  - CATARACT [None]
  - CONSTIPATION [None]
  - COSTOCHONDRITIS [None]
  - DEAFNESS [None]
  - EAR PAIN [None]
  - GASTRITIS [None]
  - HERPES ZOSTER [None]
  - NEUROPATHY PERIPHERAL [None]
  - OSTEOARTHRITIS [None]
  - OSTEOPENIA [None]
  - PAIN IN JAW [None]
  - PROSTATIC DISORDER [None]
  - RASH [None]
  - ROTATOR CUFF SYNDROME [None]
  - SINUSITIS [None]
  - SPONDYLOLISTHESIS [None]
  - TEMPOROMANDIBULAR JOINT SYNDROME [None]
  - TENDONITIS [None]
  - TINNITUS [None]
  - TRIGEMINAL NEURALGIA [None]
